FAERS Safety Report 20460792 (Version 1)
Quarter: 2022Q1

REPORT INFORMATION
  Report Type: Report from Study
  Country: IT (occurrence: IT)
  Receive Date: 20220211
  Receipt Date: 20220211
  Transmission Date: 20220423
  Serious: Yes (Hospitalization)
  Sender: FDA-Public Use
  Company Number: IT-PFIZER INC-202200242116

PATIENT

DRUGS (2)
  1. VENLAFAXINE HCL [Interacting]
     Active Substance: VENLAFAXINE HYDROCHLORIDE
     Indication: Major depression
     Dosage: 150 MG
  2. PALIPERIDONE [Interacting]
     Active Substance: PALIPERIDONE
     Indication: Major depression
     Dosage: 3 MG

REACTIONS (2)
  - Drug interaction [Unknown]
  - Muscle rigidity [Unknown]
